FAERS Safety Report 7049345-X (Version None)
Quarter: 2010Q4

REPORT INFORMATION
  Report Type: 
  Country: None (occurrence: None)
  Receive Date: 20101008
  Receipt Date: 20100719
  Transmission Date: 20110411
  Serious: Yes (Death, Hospitalization)
  Sender: FDA-Public Use
  Company Number: 2010AC000241

PATIENT
  Age: 72 Year
  Sex: Female

DRUGS (24)
  1. DIGOXIN [Suspect]
     Dosage: 0.125 MG; PO
     Route: 048
  2. DIGOXIN [Suspect]
     Dosage: 0.25 MG; QD; PO
     Route: 048
     Dates: start: 20041206, end: 20080301
  3. SOTALOL [Concomitant]
  4. SERTRALINE HYDROCHLORIDE [Concomitant]
  5. ACETAMINOPHEN [Concomitant]
  6. COUMADIN [Concomitant]
  7. METOLAZONE [Concomitant]
  8. AMIODARONE HCL [Concomitant]
  9. NADOLOL [Concomitant]
  10. PAXIL [Concomitant]
  11. BENADRYL [Concomitant]
  12. POTASSIUM CHLORIDE [Concomitant]
  13. FENTANYL [Concomitant]
  14. ESMALOL [Concomitant]
  15. FUROSEMIDE [Concomitant]
  16. OXYCONTIN [Concomitant]
  17. EPINEPHRINE [Concomitant]
  18. PRAVACHOL [Concomitant]
  19. ALTACE [Concomitant]
  20. MULTI-VITAMIN [Concomitant]
  21. OS-CAL [Concomitant]
  22. COLACE [Concomitant]
  23. ESMOLOL HCL [Concomitant]
  24. AMBIEN [Concomitant]

REACTIONS (16)
  - ACUTE MYOCARDIAL INFARCTION [None]
  - AORTIC ARTERIOSCLEROSIS [None]
  - AORTIC VALVE INCOMPETENCE [None]
  - ATRIAL FIBRILLATION [None]
  - ATRIAL FLUTTER [None]
  - CARDIAC ARREST [None]
  - CARDIOACTIVE DRUG LEVEL DECREASED [None]
  - CONSTIPATION [None]
  - DEPRESSION [None]
  - HYPOXIC-ISCHAEMIC ENCEPHALOPATHY [None]
  - MITRAL VALVE CALCIFICATION [None]
  - MITRAL VALVE INCOMPETENCE [None]
  - MULTI-ORGAN FAILURE [None]
  - PALPITATIONS [None]
  - RESPIRATORY FAILURE [None]
  - URINARY TRACT INFECTION [None]
